FAERS Safety Report 7535254-6 (Version None)
Quarter: 2011Q2

REPORT INFORMATION
  Report Type: 
  Country: None (occurrence: None)
  Receive Date: 20110609
  Receipt Date: 20090715
  Transmission Date: 20111010
  Serious: No
  Sender: FDA-Public Use
  Company Number: 2009BI021885

PATIENT
  Sex: Female

DRUGS (1)
  1. TYSABRI [Suspect]
     Indication: MULTIPLE SCLEROSIS
     Route: 042
     Dates: start: 20090409

REACTIONS (5)
  - MUSCULAR WEAKNESS [None]
  - HEAT EXHAUSTION [None]
  - ASTHENIA [None]
  - FALL [None]
  - STRESS [None]
